FAERS Safety Report 9266391 (Version 6)
Quarter: 2013Q4

REPORT INFORMATION
  Report Type: Spontaneous
  Country: US (occurrence: US)
  Receive Date: 20130502
  Receipt Date: 20131125
  Transmission Date: 20140711
  Serious: Yes (Other)
  Sender: FDA-Public Use
  Company Number: US-BIOGENIDEC-2013BI039056

PATIENT
  Age: 63 Year
  Sex: Female

DRUGS (6)
  1. AVONEX [Suspect]
     Indication: MULTIPLE SCLEROSIS
     Route: 030
     Dates: end: 20020401
  2. AVONEX [Suspect]
     Indication: MULTIPLE SCLEROSIS
     Route: 030
     Dates: start: 20100317
  3. AVONEX [Suspect]
     Indication: MULTIPLE SCLEROSIS
     Route: 030
     Dates: start: 201009
  4. AVONEX [Suspect]
     Indication: MULTIPLE SCLEROSIS
     Route: 030
     Dates: start: 20101221
  5. AVONEX [Suspect]
     Indication: MULTIPLE SCLEROSIS
     Route: 030
     Dates: start: 20130317
  6. REBIF [Concomitant]
     Indication: MULTIPLE SCLEROSIS
     Dates: end: 2010

REACTIONS (16)
  - Breast cancer [Recovered/Resolved]
  - Cognitive disorder [Not Recovered/Not Resolved]
  - Memory impairment [Unknown]
  - Local swelling [Unknown]
  - Fluid retention [Unknown]
  - Injection site rash [Recovered/Resolved]
  - Inguinal hernia [Not Recovered/Not Resolved]
  - Umbilical hernia [Not Recovered/Not Resolved]
  - Precancerous cells present [Unknown]
  - General symptom [Not Recovered/Not Resolved]
  - Head titubation [Recovered/Resolved]
  - Incorrect product storage [Recovered/Resolved]
  - Stress [Not Recovered/Not Resolved]
  - Eye disorder [Not Recovered/Not Resolved]
  - Amnesia [Not Recovered/Not Resolved]
  - Hot flush [Recovered/Resolved]
